FAERS Safety Report 15124860 (Version 1)
Quarter: 2018Q3

REPORT INFORMATION
  Report Type: Spontaneous
  Country: GB (occurrence: GB)
  Receive Date: 20180710
  Receipt Date: 20180710
  Transmission Date: 20181010
  Serious: Yes (Hospitalization)
  Sender: FDA-Public Use
  Company Number: GB-ELI_LILLY_AND_COMPANY-GB201807000234

PATIENT
  Age: 54 Year
  Sex: Female

DRUGS (6)
  1. DULOXETINE HYDROCHLORIDE. [Suspect]
     Active Substance: DULOXETINE HYDROCHLORIDE
     Indication: DEPRESSED MOOD
     Dosage: 120 MG, DAILY
     Route: 065
  2. OMEPRAZOLE. [Concomitant]
     Active Substance: OMEPRAZOLE
     Dosage: 20 MG, DAILY
  3. TAMOXIFEN [Concomitant]
     Active Substance: TAMOXIFEN
     Dosage: 20 MG, DAILY
  4. AMITRIPTYLINE [Suspect]
     Active Substance: AMITRIPTYLINE
     Indication: PRODUCT USED FOR UNKNOWN INDICATION
     Dosage: 75 MG, DAILY
  5. TRAMADOL. [Concomitant]
     Active Substance: TRAMADOL
     Dosage: 100 MG, DAILY
  6. PREGABALIN. [Concomitant]
     Active Substance: PREGABALIN
     Dosage: 600 MG, DAILY

REACTIONS (5)
  - Cerebral haemorrhage [Unknown]
  - Nausea [Unknown]
  - Vomiting [Unknown]
  - Headache [Unknown]
  - Reversible cerebral vasoconstriction syndrome [Unknown]

NARRATIVE: CASE EVENT DATE: 20180616
